FAERS Safety Report 4741971-3 (Version None)
Quarter: 2005Q3

REPORT INFORMATION
  Report Type: 
  Country: None (occurrence: None)
  Receive Date: 20050801
  Receipt Date: 20040610
  Transmission Date: 20060218
  Serious: Yes (Hospitalization)
  Sender: FDA-Public Use
  Company Number: 207120

PATIENT
  Age: 62 Year
  Sex: Male

DRUGS (1)
  1. RITUXAN [Suspect]
     Indication: WALDENSTROM'S MACROGLOBULINAEMIA
     Dosage: INTRAVENOUS; 1/WEEK, INTRAVENOUS
     Route: 042
     Dates: start: 20020920

REACTIONS (2)
  - COUGH [None]
  - WHEEZING [None]
